FAERS Safety Report 5874673-0 (Version None)
Quarter: 2008Q3

REPORT INFORMATION
  Report Type: 
  Country: None (occurrence: None)
  Receive Date: 20080909
  Receipt Date: 20080901
  Transmission Date: 20090109
  Serious: Yes (Hospitalization)
  Sender: FDA-Public Use
  Company Number: JP-CELGENEUS-087-C5013-08060750

PATIENT
  Sex: Male
  Weight: 61.4 kg

DRUGS (17)
  1. REVLIMID [Suspect]
     Indication: MULTIPLE MYELOMA
     Route: 048
     Dates: start: 20080730
  2. REVLIMID [Suspect]
     Route: 048
     Dates: start: 20080417, end: 20080612
  3. DEXAMETHASONE [Suspect]
     Indication: MULTIPLE MYELOMA
     Route: 048
     Dates: start: 20080417, end: 20080612
  4. DEXAMETHASONE [Suspect]
     Route: 048
     Dates: start: 20080730
  5. GLIMEPIRIDE [Concomitant]
     Indication: DIABETES MELLITUS
     Route: 048
     Dates: start: 20060422
  6. LANSOPRAZOLE [Concomitant]
     Indication: DUODENAL ULCER
     Route: 048
     Dates: start: 20060729, end: 20080624
  7. MAGNESIUM OXIDE [Concomitant]
     Indication: CONSTIPATION
     Route: 048
     Dates: start: 20060729
  8. MORPHINE [Concomitant]
     Indication: ANALGESIA
     Route: 048
     Dates: start: 20060802
  9. MECOBALAMIN [Concomitant]
     Indication: HYPOAESTHESIA
     Route: 048
     Dates: start: 20070607
  10. VITAMIN B6 [Concomitant]
     Indication: HYPOAESTHESIA
     Route: 048
     Dates: start: 20070607
  11. FENTANYL [Concomitant]
     Indication: ANALGESIA
     Dosage: 1/3 DAYS
     Route: 061
     Dates: start: 20070821
  12. KETOPROFEN [Concomitant]
     Indication: ANALGESIA
     Route: 061
     Dates: start: 20070918
  13. PASTARON [Concomitant]
     Indication: PROPHYLAXIS
     Route: 061
     Dates: start: 20071106
  14. COTRIM [Concomitant]
     Indication: INFECTION PROPHYLAXIS
     Dosage: 1
     Route: 048
     Dates: start: 20080417, end: 20080528
  15. ACYCLOVIR [Concomitant]
     Indication: INFECTION PROPHYLAXIS
     Route: 048
     Dates: start: 20080417, end: 20080529
  16. FLUCONAZOLE [Concomitant]
     Indication: INFECTION PROPHYLAXIS
     Route: 048
     Dates: start: 20080417, end: 20080529
  17. ASPIRIN [Concomitant]
     Indication: THROMBOSIS PROPHYLAXIS
     Route: 048
     Dates: start: 20080417, end: 20080624

REACTIONS (1)
  - HEPATIC FUNCTION ABNORMAL [None]
